FAERS Safety Report 19010148 (Version 1)
Quarter: 2021Q1

REPORT INFORMATION
  Report Type: Spontaneous
  Country: DE (occurrence: DE)
  Receive Date: 20210316
  Receipt Date: 20210316
  Transmission Date: 20210420
  Serious: Yes (Other)
  Sender: FDA-Public Use
  Company Number: DE-SA-2021SA086981

PATIENT
  Age: 52 Year
  Sex: Female
  Weight: 47 kg

DRUGS (1)
  1. DUPIXENT [Suspect]
     Active Substance: DUPILUMAB

REACTIONS (5)
  - Pancreatitis [Unknown]
  - Weight decreased [Unknown]
  - Lymphocyte count increased [Unknown]
  - Histamine intolerance [Unknown]
  - Underweight [Recovering/Resolving]
